FAERS Safety Report 10165841 (Version 2)
Quarter: 2014Q2

REPORT INFORMATION
  Report Type: Spontaneous
  Country: US (occurrence: US)
  Receive Date: 20140510
  Receipt Date: 20140510
  Transmission Date: 20141212
  Serious: No
  Sender: FDA-Public Use
  Company Number: US-BRISTOL-MYERS SQUIBB COMPANY-19981190

PATIENT
  Age: 79 Year
  Sex: Female
  Weight: 86.17 kg

DRUGS (3)
  1. BYDUREON [Suspect]
     Indication: TYPE 2 DIABETES MELLITUS
     Route: 058
     Dates: start: 2013
  2. ONGLYZA TABS [Suspect]
     Dosage: ONE HALF TAB
     Route: 048
  3. GLIMEPIRIDE [Suspect]
     Route: 048

REACTIONS (8)
  - Nausea [Recovered/Resolved]
  - Headache [Not Recovered/Not Resolved]
  - Dizziness [Recovered/Resolved]
  - Injection site pruritus [Recovered/Resolved]
  - Injection site swelling [Recovered/Resolved]
  - Blood glucose decreased [Recovered/Resolved]
  - Dehydration [Recovering/Resolving]
  - Constipation [Unknown]
